FAERS Safety Report 23943451 (Version 1)
Quarter: 2024Q2

REPORT INFORMATION
  Report Type: Report from Study
  Country: DE (occurrence: DE)
  Receive Date: 20240605
  Receipt Date: 20240605
  Transmission Date: 20240716
  Serious: Yes (Other)
  Sender: FDA-Public Use
  Company Number: DE-ABBVIE-5786680

PATIENT
  Age: 71 Year
  Sex: Male

DRUGS (3)
  1. CARBIDOPA\LEVODOPA [Suspect]
     Active Substance: CARBIDOPA\LEVODOPA
     Indication: Parkinson^s disease
     Dosage: MD: 8.0ML; CRD: 4.2ML/H; ED: 2.5ML?CONTINUOUS FLOW RATE 4.3 ML/H (08:00-23:00)
     Route: 050
     Dates: start: 20221005
  2. CARBIDOPA\LEVODOPA [Suspect]
     Active Substance: CARBIDOPA\LEVODOPA
  3. CARBIDOPA\ENTACAPONE\LEVODOPA [Concomitant]
     Active Substance: CARBIDOPA\ENTACAPONE\LEVODOPA
     Indication: Product used for unknown indication
     Dosage: 125/31.25/200MG

REACTIONS (18)
  - Unresponsive to stimuli [Unknown]
  - Cognitive disorder [Unknown]
  - Hypokinesia [Unknown]
  - Muscle rigidity [Unknown]
  - Musculoskeletal stiffness [Unknown]
  - Rapid eye movement sleep behaviour disorder [Unknown]
  - Screaming [Unknown]
  - Dyskinesia [Unknown]
  - Hypomania [Unknown]
  - Speech disorder [Unknown]
  - Orthostatic hypotension [Unknown]
  - Fall [Recovered/Resolved]
  - Constipation [Unknown]
  - Loss of personal independence in daily activities [Unknown]
  - Walking aid user [Unknown]
  - Joint range of motion decreased [Unknown]
  - Bradykinesia [Unknown]
  - Anal incontinence [Unknown]

NARRATIVE: CASE EVENT DATE: 20240401
